FAERS Safety Report 20764468 (Version 1)
Quarter: 2022Q2

REPORT INFORMATION
  Report Type: Spontaneous
  Country: US (occurrence: None)
  Receive Date: 20220428
  Receipt Date: 20220428
  Transmission Date: 20220720
  Serious: Yes (Other)
  Sender: FDA-Public Use
  Company Number: None

PATIENT
  Age: 74 Year
  Sex: Female
  Weight: 67.5 kg

DRUGS (7)
  1. KEYTRUDA [Suspect]
     Active Substance: PEMBROLIZUMAB
  2. blood pressure meds [Concomitant]
  3. OTEZLA [Concomitant]
     Active Substance: APREMILAST
  4. Acitretin (the last 2 were given to me for this problem but do not wor [Concomitant]
  5. 1daily vitamin [Concomitant]
  6. MILK OF MAGNESIA [Concomitant]
     Active Substance: MAGNESIUM HYDROXIDE
  7. FIBER [Concomitant]
     Active Substance: PSYLLIUM HUSK

REACTIONS (6)
  - Psoriasis [None]
  - Lichen planus [None]
  - Gait inability [None]
  - Illness [None]
  - Burning sensation [None]
  - Insomnia [None]

NARRATIVE: CASE EVENT DATE: 20220210
